FAERS Safety Report 8421324-7 (Version None)
Quarter: 2012Q2

REPORT INFORMATION
  Report Type: 
  Country: None (occurrence: None)
  Receive Date: 20120608
  Receipt Date: 20120602
  Transmission Date: 20120825
  Serious: Yes (Hospitalization)
  Sender: FDA-Public Use
  Company Number: PHHY2012GB047362

PATIENT
  Age: 36 Year
  Sex: Female

DRUGS (2)
  1. IMPLANON [Interacting]
  2. CARBAMAZEPINE [Suspect]
     Indication: EPILEPSY

REACTIONS (5)
  - THROMBOSIS [None]
  - MATERNAL EXPOSURE DURING PREGNANCY [None]
  - VAGINAL HAEMORRHAGE [None]
  - RUPTURED ECTOPIC PREGNANCY [None]
  - ABDOMINAL PAIN LOWER [None]
